FAERS Safety Report 8378976-X (Version None)
Quarter: 2012Q2

REPORT INFORMATION
  Report Type: 
  Country: None (occurrence: None)
  Receive Date: 20120523
  Receipt Date: 20120518
  Transmission Date: 20120825
  Serious: No
  Sender: FDA-Public Use
  Company Number: US-PFIZER INC-2012121393

PATIENT
  Sex: Male

DRUGS (2)
  1. SUTENT [Suspect]
     Dosage: 25 MG, 1X/DAY (12.5 MG AND 25 MG ONCE EACH)
     Dates: start: 20110701
  2. SUTENT [Suspect]
     Dosage: 12.5 MG, 1X/DAY (12.5 MG AND 25 MG ONCE EACH)
     Dates: start: 20110701

REACTIONS (2)
  - NEOPLASM MALIGNANT [None]
  - DISEASE PROGRESSION [None]
